FAERS Safety Report 20105377 (Version 1)
Quarter: 2021Q4

REPORT INFORMATION
  Report Type: Spontaneous
  Country: NL (occurrence: NL)
  Receive Date: 20211124
  Receipt Date: 20211124
  Transmission Date: 20220303
  Serious: Yes (Other)
  Sender: FDA-Public Use
  Company Number: NL-LUPIN PHARMACEUTICALS INC.-2021-22705

PATIENT
  Age: 69 Year
  Sex: Female

DRUGS (5)
  1. LEVOTHYROXINE [Suspect]
     Active Substance: LEVOTHYROXINE
     Indication: Hypothyroidism
     Dosage: 200 MICROGRAM, SINGLE
     Route: 042
  2. LEVOTHYROXINE [Suspect]
     Active Substance: LEVOTHYROXINE
     Dosage: 37 MICROGRAM, QD
     Route: 048
  3. LIOTHYRONINE [Suspect]
     Active Substance: LIOTHYRONINE
     Indication: Hypothyroidism
     Dosage: 10 MICROGRAM
     Route: 042
  4. LIOTHYRONINE [Suspect]
     Active Substance: LIOTHYRONINE
     Dosage: 25 MICROGRAM, QD
     Route: 048
  5. HYDROCORTISONE [Concomitant]
     Active Substance: HYDROCORTISONE
     Indication: Hypothyroidism
     Dosage: 25 MICROGRAM, QD
     Route: 048

REACTIONS (1)
  - Atrial fibrillation [Unknown]
